FAERS Safety Report 12287532 (Version 1)
Quarter: 2016Q2

REPORT INFORMATION
  Report Type: Report from Study
  Country: BR (occurrence: BR)
  Receive Date: 20160420
  Receipt Date: 20160420
  Transmission Date: 20160815
  Serious: Yes (Other)
  Sender: FDA-Public Use
  Company Number: PHHY2014BR152141

PATIENT
  Age: 49 Year
  Sex: Male
  Weight: 89 kg

DRUGS (2)
  1. SANDOSTATIN LAR DEPOT [Suspect]
     Active Substance: OCTREOTIDE ACETATE
     Indication: GASTRIC CANCER
     Dosage: 20 MG, QMO, EVERY 28 DAYS
     Route: 030
     Dates: start: 2009
  2. DIUBLOK [Concomitant]
     Indication: HYPERTENSION
     Dosage: 1 DF, BID (1TABLET/MORNING AND 1 TABLET/NIGHT)
     Route: 065
     Dates: start: 2010

REACTIONS (13)
  - Neck pain [Unknown]
  - Bronchitis [Unknown]
  - Tremor [Unknown]
  - Pyrexia [Unknown]
  - Hypertension [Recovering/Resolving]
  - Blood glucose decreased [Not Recovered/Not Resolved]
  - Limb discomfort [Unknown]
  - Malaise [Unknown]
  - Ejaculation failure [Recovering/Resolving]
  - Loss of libido [Unknown]
  - Blood pressure fluctuation [Recovering/Resolving]
  - Glaucoma [Unknown]
  - Muscle spasms [Unknown]

NARRATIVE: CASE EVENT DATE: 2011
